FAERS Safety Report 22242943 (Version 1)
Quarter: 2023Q2

REPORT INFORMATION
  Report Type: Spontaneous
  Country: US (occurrence: US)
  Receive Date: 20230424
  Receipt Date: 20230424
  Transmission Date: 20230722
  Serious: No
  Sender: FDA-Public Use
  Company Number: US-BEH-2023157642

PATIENT
  Sex: Female

DRUGS (3)
  1. PRIVIGEN [Suspect]
     Active Substance: HUMAN IMMUNOGLOBULIN G
     Indication: Hypogammaglobulinaemia
     Dosage: 5 GRAM, EVERY 4 WEEKS
     Route: 042
     Dates: start: 202203
  2. PRIVIGEN [Suspect]
     Active Substance: HUMAN IMMUNOGLOBULIN G
     Dosage: 20 GRAM, EVERY 4 WEEKS
     Route: 042
     Dates: start: 202203
  3. PRIVIGEN [Suspect]
     Active Substance: HUMAN IMMUNOGLOBULIN G
     Dosage: 10 GRAM, EVERY 4 WEEKS
     Route: 042
     Dates: start: 202203

REACTIONS (7)
  - Blood glucose abnormal [Unknown]
  - Glomerular filtration rate abnormal [Unknown]
  - Blood creatinine abnormal [Unknown]
  - Blood potassium abnormal [Unknown]
  - COVID-19 [Unknown]
  - No adverse event [Unknown]
  - Therapy interrupted [Unknown]
